FAERS Safety Report 7799273-7 (Version None)
Quarter: 2011Q4

REPORT INFORMATION
  Report Type: 
  Country: None (occurrence: None)
  Receive Date: 20111006
  Receipt Date: 20110721
  Transmission Date: 20120403
  Serious: No
  Sender: FDA-Public Use
  Company Number: US-GLAXOSMITHKLINE-A0937583A

PATIENT
  Age: 46 Year
  Sex: Female

DRUGS (2)
  1. DUAC [Suspect]
     Indication: ACNE
     Route: 061
     Dates: start: 20101201
  2. NO CONCURRENT MEDICATION [Concomitant]

REACTIONS (4)
  - RASH MACULAR [None]
  - PRURITUS [None]
  - PRODUCT QUALITY ISSUE [None]
  - SKIN IRRITATION [None]
